FAERS Safety Report 10248041 (Version 4)
Quarter: 2014Q3

REPORT INFORMATION
  Report Type: Spontaneous
  Country: GB (occurrence: GB)
  Receive Date: 20140619
  Receipt Date: 20140827
  Transmission Date: 20150326
  Serious: Yes (Other)
  Sender: FDA-Public Use
  Company Number: GB-ACORDA-ACO_103749_2014

PATIENT
  Age: 66 Year
  Sex: Female

DRUGS (1)
  1. FAMPYRA [Suspect]
     Active Substance: DALFAMPRIDINE
     Indication: MULTIPLE SCLEROSIS
     Dosage: 10 MG, BID
     Route: 048
     Dates: start: 201304

REACTIONS (13)
  - Speech disorder [Unknown]
  - Fall [Unknown]
  - Anxiety [Unknown]
  - Anger [Unknown]
  - Loss of control of legs [Unknown]
  - Depression [Unknown]
  - Multiple sclerosis relapse [Unknown]
  - Suicidal ideation [Unknown]
  - Therapeutic response changed [Unknown]
  - Fatigue [Unknown]
  - Cognitive disorder [Unknown]
  - Emotional distress [Unknown]
  - Drug ineffective [Recovered/Resolved]

NARRATIVE: CASE EVENT DATE: 2013
